FAERS Safety Report 10250131 (Version 1)
Quarter: 2014Q2

REPORT INFORMATION
  Report Type: Spontaneous
  Country: US (occurrence: US)
  Receive Date: 20140620
  Receipt Date: 20140620
  Transmission Date: 20141212
  Serious: No
  Sender: FDA-Public Use
  Company Number: US-BRISTOL-MYERS SQUIBB COMPANY-20679080

PATIENT
  Sex: Male

DRUGS (2)
  1. ELIQUIS [Suspect]
     Indication: CEREBROVASCULAR ACCIDENT PROPHYLAXIS
  2. ATORVASTATIN [Concomitant]

REACTIONS (3)
  - Chest pain [Unknown]
  - Peripheral swelling [Unknown]
  - Pain in extremity [Unknown]
